FAERS Safety Report 5262434-5 (Version None)
Quarter: 2007Q1

REPORT INFORMATION
  Report Type: 
  Country: None (occurrence: None)
  Receive Date: 20070312
  Receipt Date: 20070302
  Transmission Date: 20070707
  Serious: Yes (Death, Life-Threatening, Hospitalization, Other)
  Sender: FDA-Public Use
  Company Number: JP-BRISTOL-MYERS SQUIBB COMPANY-13667787

PATIENT
  Age: 65 Year
  Sex: Female

DRUGS (8)
  1. ENDOXAN [Suspect]
     Indication: BREAST CANCER METASTATIC
     Route: 042
     Dates: start: 20061201, end: 20061201
  2. FLUOROURACIL [Suspect]
     Indication: BREAST CANCER METASTATIC
     Route: 042
     Dates: start: 20060801
  3. FARMORUBICIN [Suspect]
     Indication: BREAST CANCER METASTATIC
     Route: 042
     Dates: start: 20060801, end: 20061201
  4. ZOMETA [Suspect]
     Indication: METASTASES TO BONE
     Route: 042
     Dates: start: 20060801
  5. LANIRAPID [Concomitant]
     Dates: end: 20070120
  6. TAKEPRON [Concomitant]
     Dates: end: 20070120
  7. GASCON [Concomitant]
     Dates: end: 20070120
  8. MAGNESIUM OXIDE [Concomitant]
     Dates: end: 20070120

REACTIONS (2)
  - CARDIAC FAILURE [None]
  - HEPATIC FAILURE [None]
